FAERS Safety Report 13265612 (Version 13)
Quarter: 2018Q4

REPORT INFORMATION
  Report Type: Report from Study
  Country: BR (occurrence: BR)
  Receive Date: 20170223
  Receipt Date: 20181129
  Transmission Date: 20190204
  Serious: Yes (Hospitalization, Other)
  Sender: FDA-Public Use
  Company Number: PHHY2017BR024026

PATIENT
  Age: 39 Year
  Sex: Female
  Weight: 71 kg

DRUGS (14)
  1. FLUOXETINE [Concomitant]
     Active Substance: FLUOXETINE HYDROCHLORIDE
     Indication: ANXIETY
     Dosage: 2 DF, QD
     Route: 048
     Dates: start: 201409
  2. COSENTYX [Suspect]
     Active Substance: SECUKINUMAB
     Indication: PSORIASIS
     Dosage: 300 MG, QMO
     Route: 058
     Dates: start: 20160926
  3. PREDNISONE. [Concomitant]
     Active Substance: PREDNISONE
     Indication: OSTEITIS
     Dosage: 1 DF, QD
     Route: 048
     Dates: start: 201406
  4. METHOTREXATE. [Concomitant]
     Active Substance: METHOTREXATE
     Dosage: 5 MG, UNK (8 TABLETS ON WEEKEND)
     Route: 048
  5. ARAVA [Concomitant]
     Active Substance: LEFLUNOMIDE
     Indication: PSORIATIC ARTHROPATHY
     Dosage: 1 DF, QD
     Route: 048
     Dates: start: 2015
  6. COSENTYX [Suspect]
     Active Substance: SECUKINUMAB
     Dosage: 300 MG, QMO
     Route: 058
     Dates: start: 20170209, end: 20170504
  7. FLUOXETINE [Concomitant]
     Active Substance: FLUOXETINE HYDROCHLORIDE
     Indication: DEPRESSION
  8. COSENTYX [Suspect]
     Active Substance: SECUKINUMAB
     Dosage: 300 MG, QMO
     Route: 058
     Dates: start: 201701
  9. METHOTREXATE. [Concomitant]
     Active Substance: METHOTREXATE
     Indication: PSORIATIC ARTHROPATHY
     Dosage: 2 MG, UNK (8 TABLETS ON WEEKEND)
     Route: 048
     Dates: start: 2015
  10. COSENTYX [Suspect]
     Active Substance: SECUKINUMAB
     Indication: PSORIATIC ARTHROPATHY
     Dosage: 300 MG, QMO
     Route: 058
  11. LOSARTAN. [Concomitant]
     Active Substance: LOSARTAN
     Indication: HYPERTENSION
     Dosage: 2 DF, QD
     Route: 048
  12. OMEPRAZOLE. [Concomitant]
     Active Substance: OMEPRAZOLE
     Indication: PROPHYLAXIS AGAINST GASTROINTESTINAL ULCER
     Dosage: 3 DF, QD
     Route: 048
     Dates: start: 201406
  13. CALCIUM BICARBONATE [Concomitant]
     Active Substance: CALCIUM BICARBONATE
     Indication: PSORIATIC ARTHROPATHY
     Dosage: 2 DF, QD
     Route: 048
     Dates: start: 201406
  14. FOLIC ACID. [Concomitant]
     Active Substance: FOLIC ACID
     Indication: ANAEMIA PROPHYLAXIS
     Dosage: 1 DF, (4 TIMES A MONTH)
     Route: 048
     Dates: start: 2015

REACTIONS (23)
  - Malaise [Unknown]
  - Psoriatic arthropathy [Not Recovered/Not Resolved]
  - Bone pain [Unknown]
  - Pain [Unknown]
  - Psoriasis [Not Recovered/Not Resolved]
  - Spinal osteoarthritis [Unknown]
  - Fatigue [Unknown]
  - Infection [Not Recovered/Not Resolved]
  - Peripheral swelling [Unknown]
  - Concomitant disease aggravated [Unknown]
  - Joint swelling [Not Recovered/Not Resolved]
  - Blood potassium decreased [Unknown]
  - Gait disturbance [Unknown]
  - Blood cholesterol increased [Unknown]
  - Infectious pleural effusion [Unknown]
  - Weight decreased [Unknown]
  - Heart rate increased [Recovering/Resolving]
  - Arthralgia [Not Recovered/Not Resolved]
  - Hypoaesthesia [Unknown]
  - Tuberculosis [Not Recovered/Not Resolved]
  - Pulmonary tuberculosis [Not Recovered/Not Resolved]
  - Drug-induced liver injury [Recovered/Resolved]
  - Arrhythmia [Recovering/Resolving]

NARRATIVE: CASE EVENT DATE: 20170205
